FAERS Safety Report 5590132-7 (Version None)
Quarter: 2008Q1

REPORT INFORMATION
  Report Type: 
  Country: None (occurrence: None)
  Receive Date: 20080114
  Receipt Date: 20071029
  Transmission Date: 20080703
  Serious: No
  Sender: FDA-Public Use
  Company Number: US-ABBOTT-07P-163-0422623-00

PATIENT
  Sex: Female
  Weight: 10.896 kg

DRUGS (2)
  1. OMNICEF [Suspect]
     Indication: EAR INFECTION
     Dosage: 250 MG/5 ML
     Route: 048
     Dates: start: 20070922, end: 20070929
  2. MULTI-VITAMIN [Concomitant]
     Indication: VITAMIN SUPPLEMENTATION
     Route: 048
     Dates: start: 20050101

REACTIONS (2)
  - ACOUSTIC STIMULATION TESTS ABNORMAL [None]
  - ANOREXIA [None]
